FAERS Safety Report 7634099-6 (Version None)
Quarter: 2011Q3

REPORT INFORMATION
  Report Type: 
  Country: None (occurrence: None)
  Receive Date: 20110725
  Receipt Date: 20110715
  Transmission Date: 20111222
  Serious: Yes (Hospitalization)
  Sender: FDA-Public Use
  Company Number: US-ASTRAZENECA-2011SE42571

PATIENT
  Age: 21562 Day
  Sex: Female
  Weight: 65.8 kg

DRUGS (4)
  1. CYMBALTA [Concomitant]
     Dates: start: 20070101
  2. BP MED [Concomitant]
     Dates: start: 20080101
  3. CONTRACEPTIVE [Concomitant]
     Route: 048
     Dates: end: 20110604
  4. SEROQUEL [Suspect]
     Indication: SLEEP DISORDER
     Route: 048
     Dates: start: 20100101

REACTIONS (5)
  - CORONARY ARTERY BYPASS [None]
  - DEHYDRATION [None]
  - OFF LABEL USE [None]
  - MYOCARDIAL INFARCTION [None]
  - ANAEMIA [None]
